FAERS Safety Report 10221370 (Version 2)
Quarter: 2014Q2

REPORT INFORMATION
  Report Type: Spontaneous
  Country: US (occurrence: None)
  Receive Date: 20140604
  Receipt Date: 20140605
  Transmission Date: 20141212
  Serious: Yes (Death, Other)
  Sender: FDA-Public Use
  Company Number: ADR-2014-00930

PATIENT
  Age: 69 Year
  Sex: Male

DRUGS (4)
  1. COMPOUNDED BACLOFEN [Suspect]
     Indication: CANCER PAIN
  2. DILAUDID [Suspect]
  3. BUPIVACAINE [Suspect]
  4. CLONIDINE [Suspect]

REACTIONS (4)
  - Pre-existing disease [None]
  - Condition aggravated [None]
  - Therapy change [None]
  - Synovial sarcoma [None]
